FAERS Safety Report 12083465 (Version 1)
Quarter: 2016Q1

REPORT INFORMATION
  Report Type: Spontaneous
  Country: US (occurrence: None)
  Receive Date: 20160216
  Receipt Date: 20160216
  Transmission Date: 20160526
  Serious: No
  Sender: FDA-Public Use
  Company Number: None

PATIENT
  Age: 58 Year
  Sex: Female

DRUGS (8)
  1. OMEPRAZOLE. [Concomitant]
     Active Substance: OMEPRAZOLE
  2. OXYCODINE [Concomitant]
  3. ZOLIPIDEM [Concomitant]
  4. AFINITOR [Suspect]
     Active Substance: EVEROLIMUS
     Indication: PANCREATIC CARCINOMA
     Route: 048
     Dates: start: 20140925
  5. MEDROL [Concomitant]
     Active Substance: METHYLPREDNISOLONE
  6. RISPERIDONE. [Concomitant]
     Active Substance: RISPERIDONE
  7. CARISOPRODOL. [Concomitant]
     Active Substance: CARISOPRODOL
  8. CREON [Concomitant]
     Active Substance: PANCRELIPASE AMYLASE\PANCRELIPASE LIPASE\PANCRELIPASE PROTEASE

REACTIONS (2)
  - Nausea [None]
  - Stomatitis [None]

NARRATIVE: CASE EVENT DATE: 201601
